FAERS Safety Report 9707903 (Version 2)
Quarter: 2013Q4

REPORT INFORMATION
  Report Type: Spontaneous
  Country: US (occurrence: US)
  Receive Date: 20131125
  Receipt Date: 20131127
  Transmission Date: 20140711
  Serious: No
  Sender: FDA-Public Use
  Company Number: US-PFIZER INC-2013336041

PATIENT
  Sex: Female

DRUGS (5)
  1. GEODON [Suspect]
     Dosage: 160 MG, UNK
  2. GEODON [Suspect]
     Dosage: 120 MG, UNK
  3. XANAX [Suspect]
     Dosage: UNK
  4. TOPAMAX [Concomitant]
     Dosage: UNK
  5. LAMICTAL [Concomitant]
     Dosage: UNK

REACTIONS (1)
  - Weight increased [Unknown]
